FAERS Safety Report 16813896 (Version 5)
Quarter: 2019Q4

REPORT INFORMATION
  Report Type: Spontaneous
  Country: GB (occurrence: GB)
  Receive Date: 20190917
  Receipt Date: 20191113
  Transmission Date: 20200122
  Serious: Yes (Death, Other)
  Sender: FDA-Public Use
  Company Number: RU-SA-2019SA256712

PATIENT
  Age: 14 Year
  Sex: Male

DRUGS (8)
  1. ALKERAN [Suspect]
     Active Substance: MELPHALAN
     Indication: PRIMARY IMMUNODEFICIENCY SYNDROME
     Dosage: UNK, UNK
     Route: 065
  2. CAMPATH [Suspect]
     Active Substance: ALEMTUZUMAB
     Indication: PRIMARY IMMUNODEFICIENCY SYNDROME
  3. CAMPATH [Suspect]
     Active Substance: ALEMTUZUMAB
     Indication: CHOLANGITIS SCLEROSING
     Dosage: UNK UNK, UNK
     Route: 065
  4. FLUDARABINE PHOSPHATE. [Suspect]
     Active Substance: FLUDARABINE PHOSPHATE
     Indication: PRIMARY IMMUNODEFICIENCY SYNDROME
     Dosage: UNK UNK, UNK
     Route: 065
  5. FLUDARABINE PHOSPHATE. [Suspect]
     Active Substance: FLUDARABINE PHOSPHATE
     Indication: CHOLANGITIS SCLEROSING
  6. ALKERAN [Suspect]
     Active Substance: MELPHALAN
     Indication: CHOLANGITIS SCLEROSING
  7. MYCOPHENOLATE MOFETIL. [Concomitant]
     Active Substance: MYCOPHENOLATE MOFETIL
     Indication: PROPHYLAXIS AGAINST GRAFT VERSUS HOST DISEASE
  8. CYCLOSPORIN A [Concomitant]
     Active Substance: CYCLOSPORINE
     Indication: PROPHYLAXIS AGAINST GRAFT VERSUS HOST DISEASE

REACTIONS (4)
  - Cryptosporidiosis infection [Fatal]
  - Encephalitis cytomegalovirus [Fatal]
  - Multiple organ dysfunction syndrome [Fatal]
  - Off label use [Unknown]

NARRATIVE: CASE EVENT DATE: 2019
